FAERS Safety Report 9142690 (Version 1)
Quarter: 2013Q1

REPORT INFORMATION
  Report Type: Spontaneous
  Country: US (occurrence: US)
  Receive Date: 20130306
  Receipt Date: 20130306
  Transmission Date: 20140127
  Serious: Yes (Life-Threatening, Other)
  Sender: FDA-Public Use
  Company Number: PHEH2013US005321

PATIENT
  Sex: Male

DRUGS (3)
  1. DIOVAN [Suspect]
     Indication: HYPERTENSION
     Dosage: 160 MG, QD (CUTS PILL INTO HALF)
     Route: 048
  2. SYNTHROID [Concomitant]
  3. ROXICODONE [Concomitant]

REACTIONS (3)
  - Throat cancer [Unknown]
  - Gout [Unknown]
  - Wrong technique in drug usage process [Unknown]
